FAERS Safety Report 5776553-8 (Version None)
Quarter: 2008Q2

REPORT INFORMATION
  Report Type: 
  Country: None (occurrence: None)
  Receive Date: 20080616
  Receipt Date: 20080609
  Transmission Date: 20081010
  Serious: Yes (Death)
  Sender: FDA-Public Use
  Company Number: 2007SP002020

PATIENT
  Age: 65 Year
  Sex: Female
  Weight: 55 kg

DRUGS (11)
  1. TEMODAL [Suspect]
     Indication: GLIOBLASTOMA MULTIFORME
     Dosage: 75 MG/M2;QD;PO 150 MG/M2;QD;PO
     Route: 048
     Dates: start: 20061023, end: 20061203
  2. TEMODAL [Suspect]
     Indication: GLIOBLASTOMA MULTIFORME
     Dosage: 75 MG/M2;QD;PO 150 MG/M2;QD;PO
     Route: 048
     Dates: start: 20070106, end: 20070110
  3. DECADRON [Suspect]
     Indication: GLIOBLASTOMA MULTIFORME
     Dosage: SWEE IMAGE
     Route: 041
     Dates: start: 20061103, end: 20061115
  4. DECADRON [Suspect]
     Indication: GLIOBLASTOMA MULTIFORME
     Dosage: SWEE IMAGE
     Route: 041
     Dates: start: 20061116, end: 20070118
  5. DECADRON [Suspect]
     Indication: GLIOBLASTOMA MULTIFORME
     Dosage: SWEE IMAGE
     Route: 041
     Dates: start: 20070118, end: 20070129
  6. BAKTAR [Concomitant]
  7. GLYCEOL [Concomitant]
  8. LOXONIN [Concomitant]
  9. FAMOTIDINE [Concomitant]
  10. FAMOTIDINE [Concomitant]
  11. SELBEX [Concomitant]

REACTIONS (9)
  - ALTERED STATE OF CONSCIOUSNESS [None]
  - BRAIN NEOPLASM [None]
  - BRAIN OEDEMA [None]
  - DEEP VEIN THROMBOSIS [None]
  - DISSEMINATED INTRAVASCULAR COAGULATION [None]
  - HEADACHE [None]
  - NEUTROPHIL COUNT DECREASED [None]
  - PULMONARY EMBOLISM [None]
  - PULMONARY INFARCTION [None]
